FAERS Safety Report 7502590-9 (Version None)
Quarter: 2011Q2

REPORT INFORMATION
  Report Type: 
  Country: None (occurrence: None)
  Receive Date: 20110525
  Receipt Date: 20110517
  Transmission Date: 20111010
  Serious: Yes (Death)
  Sender: FDA-Public Use
  Company Number: GB-JNJFOC-20110508709

PATIENT
  Sex: Female

DRUGS (4)
  1. VALPROATE SODIUM [Suspect]
     Indication: EPILEPSY
     Route: 065
  2. CARBAMAZEPINE [Suspect]
     Indication: EPILEPSY
     Route: 065
  3. TOPIRAMATE [Suspect]
     Indication: EPILEPSY
     Route: 048
  4. PHENOBARBITAL TAB [Suspect]
     Indication: EPILEPSY
     Route: 065

REACTIONS (1)
  - STATUS EPILEPTICUS [None]
